FAERS Safety Report 7048795-5 (Version None)
Quarter: 2010Q4

REPORT INFORMATION
  Report Type: 
  Country: None (occurrence: None)
  Receive Date: 20101018
  Receipt Date: 20101004
  Transmission Date: 20110411
  Serious: Yes (Hospitalization, Other)
  Sender: FDA-Public Use
  Company Number: PHHY2010FR55134

PATIENT
  Sex: Female

DRUGS (12)
  1. VALSARTAN  AND HYDROCHLOROTHIAZIDE [Suspect]
     Dosage: 1 DF, QD
     Route: 048
     Dates: start: 20100428, end: 20100807
  2. PREVISCAN [Suspect]
     Dosage: 20 MG
     Dates: start: 20100519, end: 20100807
  3. SEROPLEX [Suspect]
     Dosage: UNK
     Dates: start: 20100417, end: 20100807
  4. IMOVANE [Suspect]
     Dosage: 1 DF, QD
     Dates: start: 20100503, end: 20100809
  5. PARIET [Concomitant]
     Dosage: UNK
     Dates: end: 20100807
  6. MOTILIUM [Concomitant]
     Dosage: UNK
     Dates: end: 20100807
  7. GAVISCON [Concomitant]
     Dosage: UNK
     Dates: end: 20100807
  8. TEMERIT [Concomitant]
     Dosage: 5 MG
     Dates: start: 20100630
  9. DITROPAN [Concomitant]
     Dosage: UNK
     Dates: start: 20100708
  10. DEXTROPROPOXYPHENE HCL W/PARACETAMOL [Concomitant]
     Dosage: UNK
     Dates: start: 20100601
  11. TAHOR [Concomitant]
     Dosage: UNK
     Dates: start: 20100401
  12. AMLODIPINE [Concomitant]
     Dosage: UNK
     Dates: start: 20100401

REACTIONS (11)
  - ALANINE AMINOTRANSFERASE INCREASED [None]
  - ASPARTATE AMINOTRANSFERASE INCREASED [None]
  - BLOOD ALKALINE PHOSPHATASE INCREASED [None]
  - BLOOD BILIRUBIN INCREASED [None]
  - BLOOD CREATININE INCREASED [None]
  - DRUG RASH WITH EOSINOPHILIA AND SYSTEMIC SYMPTOMS [None]
  - EOSINOPHIL COUNT INCREASED [None]
  - PURPURA [None]
  - RASH [None]
  - RASH ERYTHEMATOUS [None]
  - RENAL FAILURE ACUTE [None]
